FAERS Safety Report 9588958 (Version 1)
Quarter: 2013Q4

REPORT INFORMATION
  Report Type: Spontaneous
  Country: US (occurrence: US)
  Receive Date: 20131003
  Receipt Date: 20131003
  Transmission Date: 20140711
  Serious: No
  Sender: FDA-Public Use
  Company Number: US-AMGEN-USASP2012067171

PATIENT
  Sex: Female
  Weight: 62.13 kg

DRUGS (5)
  1. ENBREL [Suspect]
     Indication: RHEUMATOID ARTHRITIS
     Dosage: 25 MG, 2 TIMES/WK
     Route: 058
     Dates: start: 2000
  2. VITAMIN B 12 [Concomitant]
     Dosage: 250 MUG, UNK
  3. ALEVE [Concomitant]
     Dosage: 220 MUG, UNK
  4. PREMPRO [Concomitant]
     Dosage: .625-2.5
  5. TYLENOL COLD                       /00384601/ [Concomitant]
     Dosage: UNK

REACTIONS (2)
  - Therapeutic response decreased [Unknown]
  - Upper-airway cough syndrome [Unknown]
